FAERS Safety Report 6557654-3 (Version None)
Quarter: 2010Q1

REPORT INFORMATION
  Report Type: 
  Country: None (occurrence: None)
  Receive Date: 20100129
  Receipt Date: 20081219
  Transmission Date: 20100710
  Serious: No
  Sender: FDA-Public Use
  Company Number: A0761147A

PATIENT
  Age: 48 Year
  Sex: Female

DRUGS (3)
  1. COMBIVIR [Suspect]
     Indication: HIV INFECTION
     Route: 048
  2. VIRACEPT [Suspect]
     Indication: HIV INFECTION
     Route: 048
     Dates: start: 19980101
  3. LIPITOR [Suspect]
     Indication: BLOOD CHOLESTEROL INCREASED
     Dosage: 20MG PER DAY

REACTIONS (4)
  - BONE PAIN [None]
  - DYSSTASIA [None]
  - FATIGUE [None]
  - OSTEOPOROSIS [None]
